FAERS Safety Report 10187107 (Version 2)
Quarter: 2014Q2

REPORT INFORMATION
  Report Type: Spontaneous
  Country: US (occurrence: US)
  Receive Date: 20140522
  Receipt Date: 20140613
  Transmission Date: 20141212
  Serious: Yes (Hospitalization, Other)
  Sender: FDA-Public Use
  Company Number: US-ROCHE-1404110

PATIENT
  Age: 63 Year
  Sex: Female

DRUGS (1)
  1. KADCYLA [Suspect]
     Indication: BREAST CANCER
     Route: 042

REACTIONS (4)
  - Malaise [Unknown]
  - Yellow skin [Unknown]
  - Blood bilirubin increased [Not Recovered/Not Resolved]
  - Metastasis [Unknown]
